FAERS Safety Report 7618716-2 (Version None)
Quarter: 2011Q3

REPORT INFORMATION
  Report Type: 
  Country: None (occurrence: None)
  Receive Date: 20110718
  Receipt Date: 20110628
  Transmission Date: 20111222
  Serious: Yes (Hospitalization, Other)
  Sender: FDA-Public Use
  Company Number: KR-SANOFI-AVENTIS-2010SA071926

PATIENT
  Sex: Female
  Weight: 2.65 kg

DRUGS (3)
  1. LANTUS [Suspect]
     Indication: DIABETES MELLITUS
     Dosage: DOSE:12 UNIT(S)
     Route: 064
     Dates: start: 20101101
  2. LANTUS [Suspect]
     Dosage: DOSE:10 UNIT(S)
     Route: 064
     Dates: start: 20101124
  3. LANTUS [Suspect]
     Dosage: DOSE:16 UNIT(S)
     Route: 064
     Dates: end: 20110531

REACTIONS (2)
  - CYANOSIS NEONATAL [None]
  - MATERNAL EXPOSURE DURING PREGNANCY [None]
